FAERS Safety Report 9878656 (Version 2)
Quarter: 2014Q1

REPORT INFORMATION
  Report Type: Spontaneous
  Country: US (occurrence: US)
  Receive Date: 20140206
  Receipt Date: 20140206
  Transmission Date: 20141002
  Serious: No
  Sender: FDA-Public Use
  Company Number: US-ALLERGAN-1312663US

PATIENT
  Age: 29 Year
  Sex: Female

DRUGS (4)
  1. BOTOX [Suspect]
     Indication: MIGRAINE
     Dosage: 200 UNITS, SINGLE
     Route: 030
     Dates: start: 201306, end: 201306
  2. SUMATRIPTAN [Concomitant]
     Indication: MIGRAINE
     Dosage: 100 MG, PRN
  3. FROVA [Concomitant]
     Indication: MIGRAINE
     Dosage: 2.5 MG, PRN
  4. NAMENDA [Concomitant]
     Indication: MIGRAINE
     Dosage: 20 MG, QD

REACTIONS (2)
  - Off label use [Unknown]
  - Drug ineffective [Unknown]
